FAERS Safety Report 12075188 (Version 3)
Quarter: 2016Q2

REPORT INFORMATION
  Report Type: Spontaneous
  Country: GR (occurrence: GR)
  Receive Date: 20160212
  Receipt Date: 20160408
  Transmission Date: 20160815
  Serious: Yes (Death, Hospitalization, Other)
  Sender: FDA-Public Use
  Company Number: GR-009507513-1602GRC006558

PATIENT
  Age: 67 Year
  Sex: Female

DRUGS (11)
  1. NEBIVOLOL. [Concomitant]
     Active Substance: NEBIVOLOL
  2. CITALOPRAM [Concomitant]
     Active Substance: CITALOPRAM HYDROBROMIDE
  3. HYDROCHLOROTHIAZIDE (+) VALSARTAN [Concomitant]
     Active Substance: HYDROCHLOROTHIAZIDE\VALSARTAN
  4. TRAMADOL HYDROCHLORIDE. [Concomitant]
     Active Substance: TRAMADOL HYDROCHLORIDE
  5. LEVOFLOXACIN. [Concomitant]
     Active Substance: LEVOFLOXACIN
  6. FENTANYL. [Concomitant]
     Active Substance: FENTANYL
     Dosage: 50 TTS
  7. ACETAMINOPHEN. [Concomitant]
     Active Substance: ACETAMINOPHEN
  8. OMEPRAZOLE. [Concomitant]
     Active Substance: OMEPRAZOLE
  9. ENOXAPARIN SODIUM. [Concomitant]
     Active Substance: ENOXAPARIN SODIUM
     Dosage: 60 X 2
  10. FENTANYL. [Concomitant]
     Active Substance: FENTANYL
  11. KEYTRUDA [Suspect]
     Active Substance: PEMBROLIZUMAB
     Indication: NON-SMALL CELL LUNG CANCER STAGE IV
     Dosage: 2 MG/KG, Q3W
     Dates: start: 20151022, end: 20151113

REACTIONS (6)
  - Respiratory failure [Fatal]
  - Respiratory distress [Unknown]
  - Atrial fibrillation [Unknown]
  - Pericardial effusion [Unknown]
  - Product use issue [Unknown]
  - Pneumonitis [Unknown]

NARRATIVE: CASE EVENT DATE: 2015
